FAERS Safety Report 10384367 (Version 1)
Quarter: 2014Q1

REPORT INFORMATION
  Report Type: Spontaneous
  Country: US (occurrence: None)
  Receive Date: 20140306
  Receipt Date: 20140306
  Transmission Date: 20141002
  Serious: Yes (Other)
  Sender: FDA-Public Use
  Company Number: 163-21880-13090434

PATIENT
  Age: 81 Year
  Sex: Male
  Weight: 78.47 kg

DRUGS (11)
  1. REVLIMIB (LENALIDOMIDE) (10 MILLIGRAM, CAPSULES) [Suspect]
     Indication: PLASMA CELL MYELOMA
     Dosage: 10MG, 21 IN 28 D, PO
     Route: 048
     Dates: start: 20130708
  2. DEXAMETHASONE [Concomitant]
  3. LOTREL (CAPSULES) [Concomitant]
  4. CITALOPRAM HBR (CITALOPRAM HYDROBROMIDE) [Concomitant]
  5. HYDROXYZINE [Concomitant]
  6. DIPHENHYDRAMINE HCL (DIPHENHYDRAMINE HYDROCHLORIDE) [Concomitant]
  7. NEXIUM (ESOMEPRAZOLE) (CAPSULES) [Concomitant]
  8. METOPROLOL TARTRATE) [Concomitant]
  9. KRILL OIL (OMEGA-3 FATTY ACIDS) [Concomitant]
  10. VYTORIN (INEGY) [Concomitant]
  11. CALCIUM CITRATE) [Concomitant]

REACTIONS (1)
  - Nocturia [None]
